FAERS Safety Report 7003633-1 (Version None)
Quarter: 2010Q3

REPORT INFORMATION
  Report Type: 
  Country: None (occurrence: None)
  Receive Date: 20100920
  Receipt Date: 20090612
  Transmission Date: 20110219
  Serious: No
  Sender: FDA-Public Use
  Company Number: US-WYE-H09747509

PATIENT
  Age: 74 Year
  Sex: Female

DRUGS (2)
  1. PROTONIX [Suspect]
     Indication: GASTROOESOPHAGEAL REFLUX DISEASE
     Dosage: BEGAN 40 MG DAILY 5-7 YEARS AGO
     Route: 048
  2. ALLEGRA [Concomitant]

REACTIONS (2)
  - FALL [None]
  - UPPER RESPIRATORY TRACT INFECTION [None]
